FAERS Safety Report 8814086 (Version 2)
Quarter: 2012Q4

REPORT INFORMATION
  Report Type: 
  Country: US (occurrence: US)
  Receive Date: 20120928
  Receipt Date: 20121211
  Transmission Date: 20130627
  Serious: Yes (Other)
  Sender: FDA-Public Use
  Company Number: US-BAYER-2012-087061

PATIENT
  Age: 77 Year
  Sex: Female
  Weight: 77.11 kg

DRUGS (15)
  1. RIVAROXABAN [Suspect]
     Indication: ATRIAL FIBRILLATION
     Dosage: Dosage Form: Tablet, Drug given in AM
     Route: 048
     Dates: start: 20120812
  2. RIVAROXABAN [Suspect]
     Indication: CEREBROVASCULAR ACCIDENT PROPHYLAXIS
  3. ACETYLSALICYLIC ACID({=100 MG) [Suspect]
     Indication: PRODUCT USED FOR UNKNOWN INDICATION
  4. ZETIA [Concomitant]
     Indication: CHOLESTEROL TOTAL ABNORMAL NOS
     Dosage: 10 mg, QD
     Route: 048
     Dates: start: 2010
  5. ZETIA [Concomitant]
     Indication: CHOLESTEROL TOTAL ABNORMAL NOS
     Dosage: 10 mg, QD
     Route: 048
  6. LIPITOR [Concomitant]
     Indication: BLOOD PRESSURE ABNORMAL
     Dosage: 20 mg, QD
     Route: 048
     Dates: start: 2010
  7. LOTREL [Concomitant]
     Indication: BLOOD PRESSURE ABNORMAL
     Dosage: 1 DF, QD
     Route: 048
     Dates: start: 2007
  8. METOPROLOL [Concomitant]
     Indication: BLOOD PRESSURE HIGH
     Route: 048
  9. METOPROLOL [Concomitant]
     Indication: BLOOD PRESSURE HIGH
  10. METOPROLOL [Concomitant]
     Indication: BLOOD PRESSURE HIGH
     Dosage: 100 mg, UNK
     Route: 048
  11. SOTALOL [Concomitant]
     Indication: ATRIAL FIBRILLATION
     Dosage: 80 mg, QD
     Route: 048
     Dates: start: 20120813
  12. SOTALOL [Concomitant]
     Indication: ATRIAL FIBRILLATION
     Dosage: 80 mg, QD
     Route: 048
     Dates: start: 20120812
  13. SYNTHROID [Concomitant]
     Indication: THYROID DISORDER
     Dosage: 50 ?g, QD
     Route: 048
     Dates: start: 2010
  14. SYNTHROID [Concomitant]
     Indication: THYROID DISORDER
     Dosage: 75 ?g, UNK
     Route: 048
  15. SYNTHROID [Concomitant]
     Indication: THYROID DISORDER

REACTIONS (4)
  - Chromaturia [Recovered/Resolved]
  - Blood urine present [Recovered/Resolved]
  - Pruritus [Unknown]
  - Inappropriate schedule of drug administration [Unknown]
